FAERS Safety Report 23850941 (Version 2)
Quarter: 2024Q2

REPORT INFORMATION
  Report Type: Spontaneous
  Country: US (occurrence: US)
  Receive Date: 20240514
  Receipt Date: 20240528
  Transmission Date: 20240716
  Serious: No
  Sender: FDA-Public Use
  Company Number: US-JNJFOC-20240521141

PATIENT

DRUGS (3)
  1. SPRAVATO [Suspect]
     Active Substance: ESKETAMINE
     Indication: Depression
     Dosage: INITIAL 56 MG DOSE ON THE FIRST DAY
  2. SPRAVATO [Suspect]
     Active Substance: ESKETAMINE
     Indication: Major depression
     Dosage: 84 MG INTRANASAL TWICE WEEKLY FOR 4 WEEKS
  3. SPRAVATO [Suspect]
     Active Substance: ESKETAMINE
     Indication: Fibromyalgia
     Dosage: ONCE WEEKLY FOR 4 WEEKS

REACTIONS (1)
  - Therapeutic response unexpected [Unknown]
